FAERS Safety Report 11390122 (Version 1)
Quarter: 2015Q3

REPORT INFORMATION
  Report Type: Spontaneous
  Country: US (occurrence: None)
  Receive Date: 20150814
  Receipt Date: 20150814
  Transmission Date: 20151125
  Serious: Yes (Hospitalization)
  Sender: FDA-Public Use
  Company Number: None

PATIENT
  Age: 94 Year
  Sex: Male
  Weight: 82 kg

DRUGS (20)
  1. JANUVIA [Suspect]
     Active Substance: SITAGLIPTIN PHOSPHATE
     Indication: DIABETES MELLITUS
     Dosage: 50MG?QAM?PO?CHRONIC
     Route: 048
  2. ACTOS [Suspect]
     Active Substance: PIOGLITAZONE HYDROCHLORIDE
     Indication: DIABETES MELLITUS
     Dosage: 15MG ?DAILY?PO?CHRONIC
     Route: 048
  3. KLOR-CON [Concomitant]
     Active Substance: POTASSIUM CHLORIDE
  4. DIOVAN [Concomitant]
     Active Substance: VALSARTAN
  5. COREG [Concomitant]
     Active Substance: CARVEDILOL
  6. FUROSEMIDE. [Concomitant]
     Active Substance: FUROSEMIDE
  7. PRAVACHOL [Concomitant]
     Active Substance: PRAVASTATIN SODIUM
  8. ECOTRIN [Concomitant]
     Active Substance: ASPIRIN
  9. VITAMIN D3 [Concomitant]
     Active Substance: CHOLECALCIFEROL
  10. MIRALAX [Concomitant]
     Active Substance: POLYETHYLENE GLYCOL 3350
  11. APAP [Concomitant]
     Active Substance: ACETAMINOPHEN
  12. PRILOSEC [Concomitant]
     Active Substance: OMEPRAZOLE MAGNESIUM
  13. LUTEIN [Concomitant]
     Active Substance: LUTEIN
  14. AMARYL [Suspect]
     Active Substance: GLIMEPIRIDE
     Dosage: CHRONIC
     Route: 048
  15. FLOMAX [Concomitant]
     Active Substance: TAMSULOSIN HYDROCHLORIDE
  16. XANAX [Concomitant]
     Active Substance: ALPRAZOLAM
  17. COLCHICINE. [Concomitant]
     Active Substance: COLCHICINE
  18. SYNTHROID [Concomitant]
     Active Substance: LEVOTHYROXINE SODIUM
  19. ZOLOFT [Concomitant]
     Active Substance: SERTRALINE HYDROCHLORIDE
  20. THERAGRAN [Concomitant]
     Active Substance: VITAMINS

REACTIONS (5)
  - Sepsis [None]
  - Hypoglycaemia [None]
  - Hypophagia [None]
  - Oropharyngeal pain [None]
  - Urinary tract infection [None]

NARRATIVE: CASE EVENT DATE: 20150411
